FAERS Safety Report 5512760-7 (Version None)
Quarter: 2007Q4

REPORT INFORMATION
  Report Type: 
  Country: None (occurrence: None)
  Receive Date: 20071112
  Receipt Date: 20071031
  Transmission Date: 20080405
  Serious: Yes (Other)
  Sender: FDA-Public Use
  Company Number: JP-BRISTOL-MYERS SQUIBB COMPANY-13973219

PATIENT
  Age: 89 Year
  Sex: Female

DRUGS (5)
  1. ARIPIPRAZOLE [Suspect]
     Indication: SCHIZOPHRENIA
     Dosage: ON 21-OCT-2007 TO 27-OCT-2007 3 MG. ON 28-OCT-2007 TO 28-OCT-2007 WAS INCREASED TO 6 MG.
     Route: 048
     Dates: start: 20071028, end: 20071029
  2. PROPERICIAZINE [Concomitant]
     Indication: SCHIZOPHRENIA
     Dosage: TILL 27-OCT-2007 25 MG. ON 28-OCT-2007 10 MG. ON 29-OCT-2007 ONGOING 25 MG.
     Route: 048
     Dates: start: 20071028, end: 20071028
  3. BIPERIDEN HYDROCHLORIDE TAB [Concomitant]
     Indication: PROPHYLAXIS
     Route: 048
  4. SENNOSIDE [Concomitant]
     Indication: PROPHYLAXIS
     Route: 048
  5. MAGNESIUM OXIDE [Concomitant]
     Indication: PROPHYLAXIS
     Route: 048

REACTIONS (1)
  - DELUSION [None]
